FAERS Safety Report 9621435 (Version 2)
Quarter: 2013Q4

REPORT INFORMATION
  Report Type: Spontaneous
  Country: BR (occurrence: BR)
  Receive Date: 20131015
  Receipt Date: 20131120
  Transmission Date: 20140711
  Serious: Yes (Death, Hospitalization)
  Sender: FDA-Public Use
  Company Number: BR-ELI_LILLY_AND_COMPANY-BR201310002718

PATIENT
  Sex: Male
  Weight: 30 kg

DRUGS (5)
  1. FORTEO [Suspect]
     Indication: OSTEOARTHRITIS
     Dosage: UNK UNK, 2/W
     Route: 058
     Dates: start: 2011, end: 20130923
  2. ERYTHROPOIETIN HUMAN [Concomitant]
     Indication: MYELODYSPLASTIC SYNDROME
     Dosage: 10000 IU, 2/W
     Route: 065
  3. RITMONORM [Concomitant]
     Indication: ARRHYTHMIA
     Dosage: UNK, UNKNOWN
     Route: 065
  4. OMEPRAZOLE [Concomitant]
     Indication: GASTRIC DISORDER
     Dosage: 50 MG, QD
     Route: 065
  5. OMEPRAZOLE [Concomitant]
     Dosage: 75 MG, QD
     Route: 065

REACTIONS (5)
  - Anaemia [Fatal]
  - Myelodysplastic syndrome [Fatal]
  - Off label use [Unknown]
  - Inappropriate schedule of drug administration [Unknown]
  - Incorrect drug administration duration [Unknown]
